FAERS Safety Report 7364206-4 (Version None)
Quarter: 2011Q1

REPORT INFORMATION
  Report Type: 
  Country: None (occurrence: None)
  Receive Date: 20110321
  Receipt Date: 20110308
  Transmission Date: 20110831
  Serious: Yes (Other)
  Sender: FDA-Public Use
  Company Number: FR-JNJFOC-20110306950

PATIENT
  Sex: Female
  Weight: 2.06 kg

DRUGS (7)
  1. REMICADE [Suspect]
     Indication: DRUG EXPOSURE DURING PREGNANCY
     Route: 064
  2. ROVAMYCINE [Concomitant]
  3. REMICADE [Suspect]
     Route: 064
  4. REMICADE [Suspect]
     Route: 064
  5. REMICADE [Suspect]
     Route: 064
  6. REMICADE [Suspect]
     Route: 064
  7. ACETAMINOPHEN [Concomitant]

REACTIONS (2)
  - PREMATURE BABY [None]
  - SMALL FOR DATES BABY [None]
